FAERS Safety Report 5695024-0 (Version None)
Quarter: 2008Q2

REPORT INFORMATION
  Report Type: 
  Country: None (occurrence: None)
  Receive Date: 20080404
  Receipt Date: 20080325
  Transmission Date: 20081010
  Serious: Yes (Hospitalization)
  Sender: FDA-Public Use
  Company Number: GB-ROCHE-555249

PATIENT
  Sex: Female
  Weight: 184.2 kg

DRUGS (2)
  1. ORLISTAT [Suspect]
     Indication: OBESITY
     Route: 048
     Dates: start: 20071217
  2. UNSPECIFIED DRUGS [Concomitant]
     Dosage: IT WAS REPORTED THAT THE PATIENT TAKES MEDICATIONS FOR THE CONDITIONS OF HIGH BLOOD PRESSURE, HIGH +

REACTIONS (1)
  - INFECTION [None]
